FAERS Safety Report 24538147 (Version 1)
Quarter: 2024Q4

REPORT INFORMATION
  Report Type: Spontaneous
  Country: FI (occurrence: FI)
  Receive Date: 20241023
  Receipt Date: 20241023
  Transmission Date: 20250114
  Serious: Yes (Other)
  Sender: CHEPLAPHARM
  Company Number: None

PATIENT
  Sex: Female

DRUGS (1)
  1. OLANZAPINE PAMOATE [Suspect]
     Active Substance: OLANZAPINE PAMOATE

REACTIONS (11)
  - Diabetes mellitus inadequate control [Unknown]
  - Seizure [Unknown]
  - Weight increased [Unknown]
  - Constipation [Unknown]
  - Musculoskeletal stiffness [Unknown]
  - Myalgia [Unknown]
  - Arthralgia [Unknown]
  - Dysuria [Unknown]
  - Asthenia [Unknown]
  - Apathy [Unknown]
  - Insomnia [Unknown]
